FAERS Safety Report 4800095-7 (Version None)
Quarter: 2005Q4

REPORT INFORMATION
  Report Type: 
  Country: None (occurrence: None)
  Receive Date: 20051012
  Receipt Date: 20051012
  Transmission Date: 20060501
  Serious: Yes (Hospitalization)
  Sender: FDA-Public Use
  Company Number: None

PATIENT
  Sex: Male
  Weight: 117.9352 kg

DRUGS (2)
  1. HALDOL [Suspect]
     Dosage: 5 MG, [PRIOR TO ADMISSION]
  2. TRAZODONE HCL [Concomitant]

REACTIONS (1)
  - TREMOR [None]
